FAERS Safety Report 9610951 (Version 1)
Quarter: 2013Q4

REPORT INFORMATION
  Report Type: Report from Study
  Country: BR (occurrence: BR)
  Receive Date: 20131009
  Receipt Date: 20131009
  Transmission Date: 20140711
  Serious: Yes (Other)
  Sender: FDA-Public Use
  Company Number: PHHY2013BR113179

PATIENT
  Sex: Male

DRUGS (5)
  1. EXELON PATCH [Suspect]
     Dosage: UNK UKN, UNK
  2. DIOVAN AMLO FIX [Suspect]
     Dosage: UNK UKN, UNK
  3. LANTUS [Suspect]
     Dosage: UNK UKN, UNK
  4. BENERVA [Suspect]
     Dosage: UNK UKN, UNK
  5. FUROSEMIDE [Suspect]
     Dosage: UNK UKN, UNK

REACTIONS (5)
  - Diabetes mellitus [Unknown]
  - Blood pressure abnormal [Unknown]
  - Hypersensitivity [Unknown]
  - Skin reaction [Unknown]
  - Erythema [Unknown]
